FAERS Safety Report 7407891-0 (Version None)
Quarter: 2011Q2

REPORT INFORMATION
  Report Type: 
  Country: None (occurrence: None)
  Receive Date: 20110412
  Receipt Date: 20110328
  Transmission Date: 20111010
  Serious: Yes (Death)
  Sender: FDA-Public Use
  Company Number: JP-CELGENEUS-087-21880-11040156

PATIENT
  Sex: Male

DRUGS (2)
  1. REVLIMID [Suspect]
     Indication: MULTIPLE MYELOMA
     Dosage: 25 MILLIGRAM
     Route: 048
     Dates: start: 20101025, end: 20101114
  2. REVLIMID [Suspect]
     Indication: REFRACTORY CANCER
     Dosage: 25 MILLIGRAM
     Route: 048
     Dates: start: 20101122, end: 20101205

REACTIONS (3)
  - RASH [None]
  - PLATELET COUNT DECREASED [None]
  - DEATH [None]
